FAERS Safety Report 7000531-4 (Version None)
Quarter: 2010Q3

REPORT INFORMATION
  Report Type: 
  Country: None (occurrence: None)
  Receive Date: 20100920
  Receipt Date: 20070604
  Transmission Date: 20110219
  Serious: Yes (Other)
  Sender: FDA-Public Use
  Company Number: US-ASTRAZENECA-2006UW24134

PATIENT
  Sex: Female
  Weight: 100.7 kg

DRUGS (11)
  1. SEROQUEL [Suspect]
     Indication: DEPRESSION
     Route: 048
     Dates: start: 20011102, end: 20031201
  2. SEROQUEL [Suspect]
     Route: 048
     Dates: start: 20011102, end: 20031201
  3. SEROQUEL [Suspect]
     Dosage: 100-600 MG
     Route: 048
     Dates: start: 20020103
  4. SEROQUEL [Suspect]
     Route: 048
     Dates: start: 20021101, end: 20030101
  5. ABILIFY [Concomitant]
     Dates: start: 20020101
  6. HALDOL [Concomitant]
     Dates: start: 19910101, end: 19940101
  7. THORAZINE [Concomitant]
     Dates: start: 19840101, end: 19930101
  8. OLANZAPINE [Concomitant]
     Dates: start: 20010101, end: 20030101
  9. TRILEPTAL [Concomitant]
     Dates: start: 20070101
  10. DEPAKOTE [Concomitant]
     Dates: start: 20020710
  11. HYDROCHLOROTHIAZIDE [Concomitant]
     Dates: start: 20020710

REACTIONS (3)
  - DIABETES MELLITUS [None]
  - KETOACIDOSIS [None]
  - PANCREATITIS [None]
